FAERS Safety Report 26120889 (Version 1)
Quarter: 2025Q4

REPORT INFORMATION
  Report Type: Spontaneous
  Country: CN (occurrence: CN)
  Receive Date: 20251204
  Receipt Date: 20251204
  Transmission Date: 20260117
  Serious: Yes (Life-Threatening, Other)
  Sender: MYLAN
  Company Number: CN-MYLANLABS-2025M1103480

PATIENT
  Age: 70 Year
  Sex: Male

DRUGS (4)
  1. FONDAPARINUX [Suspect]
     Active Substance: FONDAPARINUX
     Indication: Deep vein thrombosis
     Dosage: 1.5 MILLIGRAM, QD
     Dates: start: 20210622, end: 20210622
  2. FONDAPARINUX [Suspect]
     Active Substance: FONDAPARINUX
     Dosage: 1.5 MILLIGRAM, QD
     Route: 058
     Dates: start: 20210622, end: 20210622
  3. FONDAPARINUX [Suspect]
     Active Substance: FONDAPARINUX
     Dosage: 1.5 MILLIGRAM, QD
     Route: 058
     Dates: start: 20210622, end: 20210622
  4. FONDAPARINUX [Suspect]
     Active Substance: FONDAPARINUX
     Dosage: 1.5 MILLIGRAM, QD
     Dates: start: 20210622, end: 20210622

REACTIONS (1)
  - Kounis syndrome [Recovered/Resolved]

NARRATIVE: CASE EVENT DATE: 20210622
